FAERS Safety Report 8596483-6 (Version None)
Quarter: 2012Q3

REPORT INFORMATION
  Report Type: 
  Country: None (occurrence: None)
  Receive Date: 20120815
  Receipt Date: 20120807
  Transmission Date: 20120928
  Serious: No
  Sender: FDA-Public Use
  Company Number: US-ASTRAZENECA-2012SE55751

PATIENT
  Sex: Male

DRUGS (7)
  1. BRILINTA [Suspect]
     Indication: CATHETERISATION CARDIAC
     Route: 048
  2. DIOVAN [Concomitant]
     Indication: BLOOD PRESSURE MANAGEMENT
  3. ASPIRIN [Concomitant]
  4. BRILINTA [Suspect]
     Indication: STENT PLACEMENT
     Route: 048
  5. BRILINTA [Suspect]
     Route: 048
  6. BRILINTA [Suspect]
     Route: 048
  7. HYDROCHLOROTHIAZIDE [Concomitant]

REACTIONS (3)
  - PARAESTHESIA [None]
  - SENSORY LOSS [None]
  - SENSATION OF HEAVINESS [None]
